FAERS Safety Report 10573501 (Version 1)
Quarter: 2014Q4

REPORT INFORMATION
  Report Type: Spontaneous
  Country: US (occurrence: US)
  Receive Date: 20141110
  Receipt Date: 20141110
  Transmission Date: 20150529
  Serious: No
  Sender: FDA-Public Use
  Company Number: US-009507513-1411USA000465

PATIENT
  Sex: Female
  Weight: 107.3 kg

DRUGS (1)
  1. NEXPLANON [Suspect]
     Active Substance: ETONOGESTREL
     Indication: CONTRACEPTION
     Dosage: SINGLE ROD, LEFT ARM
     Route: 059
     Dates: start: 20130905

REACTIONS (3)
  - Implant site scar [Unknown]
  - Medical device complication [Unknown]
  - Unintended pregnancy [Recovered/Resolved]
